FAERS Safety Report 12962114 (Version 4)
Quarter: 2017Q4

REPORT INFORMATION
  Report Type: Report from Study
  Country: JP (occurrence: JP)
  Receive Date: 20161121
  Receipt Date: 20171122
  Transmission Date: 20180320
  Serious: Yes (Death, Other)
  Sender: FDA-Public Use
  Company Number: JP-GILEAD-2016-0244413

PATIENT
  Age: 60 Year
  Sex: Male

DRUGS (16)
  1. AMBRISENTAN [Suspect]
     Active Substance: AMBRISENTAN
     Indication: PRODUCT USED FOR UNKNOWN INDICATION
     Dosage: 2.5 MG, QD
     Route: 048
     Dates: start: 20130904, end: 20130910
  2. URALYT                             /01779901/ [Concomitant]
     Dosage: UNK
     Dates: end: 20130916
  3. METHYCOBAL [Suspect]
     Active Substance: METHYLCOBALAMIN
     Indication: HEADACHE
     Dosage: UNK
     Route: 048
     Dates: start: 20130916, end: 20131025
  4. SPIRIVA [Concomitant]
     Active Substance: TIOTROPIUM BROMIDE MONOHYDRATE
     Dosage: UNK
  5. HOKUNALIN                          /00654901/ [Concomitant]
     Active Substance: TULOBUTEROL
     Dosage: UNK
     Dates: start: 20131015, end: 20131112
  6. NEXIUM [Concomitant]
     Active Substance: ESOMEPRAZOLE MAGNESIUM
     Dosage: UNK
     Dates: start: 20131023, end: 20131112
  7. ONBREZ [Concomitant]
     Active Substance: INDACATEROL
     Dosage: UNK
  8. AMBRISENTAN [Suspect]
     Active Substance: AMBRISENTAN
     Dosage: 5 MG, QD
     Route: 048
     Dates: start: 20130911, end: 20131025
  9. SPIRIVA [Concomitant]
     Active Substance: TIOTROPIUM BROMIDE MONOHYDRATE
     Dosage: UNK
     Dates: start: 20130904
  10. PROCYLIN [Concomitant]
     Active Substance: BERAPROST SODIUM
     Dosage: UNK
     Dates: start: 20130921, end: 20131025
  11. FUROSEMIDE. [Concomitant]
     Active Substance: FUROSEMIDE
     Dosage: UNK
     Dates: start: 20131017, end: 20131112
  12. ONBREZ [Concomitant]
     Active Substance: INDACATEROL
     Dosage: UNK
     Dates: start: 20130904
  13. MEDICON                            /00048102/ [Concomitant]
     Active Substance: DEXTROMETHORPHAN HYDROBROMIDE
     Dosage: UNK
  14. FRANDOL [Concomitant]
     Active Substance: ISOSORBIDE DINITRATE
     Dosage: UNK
     Dates: start: 20131015, end: 20131112
  15. LOXONIN [Suspect]
     Active Substance: LOXOPROFEN SODIUM
     Indication: HEADACHE
     Dosage: UNK
     Route: 048
     Dates: start: 20130916, end: 20131025
  16. URINORM                            /00227201/ [Concomitant]
     Active Substance: BENZBROMARONE

REACTIONS (4)
  - Off label use [Recovered/Resolved]
  - Sudden death [Fatal]
  - Hepatic function abnormal [Recovered/Resolved]
  - Headache [Unknown]

NARRATIVE: CASE EVENT DATE: 20130904
